FAERS Safety Report 18512537 (Version 1)
Quarter: 2020Q4

REPORT INFORMATION
  Report Type: Spontaneous
  Country: GB (occurrence: GB)
  Receive Date: 20201117
  Receipt Date: 20201117
  Transmission Date: 20210114
  Serious: Yes (Hospitalization)
  Sender: FDA-Public Use
  Company Number: GB-TEVA-2020-GB-1848326

PATIENT
  Age: 41 Year
  Sex: Female
  Weight: 61.68 kg

DRUGS (5)
  1. ACCORD HEALTHCARE AMOXICILLIN [Suspect]
     Active Substance: AMOXICILLIN
     Indication: OTITIS MEDIA
     Dosage: 1500MG
     Route: 048
     Dates: start: 20190204, end: 20190204
  2. AMOXICILLIN. [Suspect]
     Active Substance: AMOXICILLIN
     Indication: OTITIS MEDIA
     Route: 048
  3. PREDNISOLONE. [Concomitant]
     Active Substance: PREDNISOLONE
  4. ERYTHROMYCIN. [Concomitant]
     Active Substance: ERYTHROMYCIN
  5. CHLORPHENAMINE [Concomitant]
     Active Substance: CHLORPHENIRAMINE MALEATE

REACTIONS (7)
  - Swelling of eyelid [Recovering/Resolving]
  - Dermatitis allergic [Not Recovered/Not Resolved]
  - Pruritus [Not Recovered/Not Resolved]
  - Erythema [Recovering/Resolving]
  - Pyrexia [Recovered/Resolved]
  - Swelling [Recovering/Resolving]
  - Product quality issue [Unknown]

NARRATIVE: CASE EVENT DATE: 20190204
